FAERS Safety Report 19163700 (Version 1)
Quarter: 2021Q2

REPORT INFORMATION
  Report Type: Spontaneous
  Country: AT (occurrence: AT)
  Receive Date: 20210421
  Receipt Date: 20210421
  Transmission Date: 20210717
  Serious: Yes (Other)
  Sender: FDA-Public Use
  Company Number: AT-STRIDES ARCOLAB LIMITED-2021SP004444

PATIENT
  Age: 55 Year
  Sex: Male

DRUGS (4)
  1. ALEMTUZUMAB [Concomitant]
     Active Substance: ALEMTUZUMAB
     Indication: TRANSPLANT
     Dosage: UNK
     Route: 065
     Dates: start: 2014
  2. TACROLIMUS. [Suspect]
     Active Substance: TACROLIMUS
     Indication: TRANSPLANT
     Dosage: UNK
     Route: 065
     Dates: start: 2014
  3. MYCOPHENOLATE MOFETIL. [Suspect]
     Active Substance: MYCOPHENOLATE MOFETIL
     Indication: TRANSPLANT
     Dosage: UNK
     Route: 065
     Dates: start: 2014
  4. NULOJIX [Suspect]
     Active Substance: BELATACEPT
     Indication: TRANSPLANT
     Dosage: 5 MILLIGRAM/KILOGRAM PER 6 WEEKS
     Route: 065
     Dates: start: 2014

REACTIONS (8)
  - Urosepsis [Unknown]
  - Skin papilloma [Unknown]
  - Acute kidney injury [Unknown]
  - Hypertension [Unknown]
  - Off label use [Unknown]
  - Subdural haematoma [Unknown]
  - Transplant rejection [Unknown]
  - Enterococcal infection [Unknown]
